FAERS Safety Report 21883330 (Version 1)
Quarter: 2023Q1

REPORT INFORMATION
  Report Type: Report from Study
  Country: CA (occurrence: CA)
  Receive Date: 20230119
  Receipt Date: 20230119
  Transmission Date: 20230418
  Serious: Yes (Other)
  Sender: FDA-Public Use
  Company Number: CA-SAMSUNG BIOEPIS-SB-2023-01168

PATIENT
  Age: 41 Year
  Sex: Male
  Weight: 76 kg

DRUGS (1)
  1. RENFLEXIS [Suspect]
     Active Substance: INFLIXIMAB-ABDA
     Indication: Sarcoidosis
     Route: 042

REACTIONS (2)
  - Bronchitis [Recovered/Resolved]
  - Product use in unapproved indication [Unknown]
